FAERS Safety Report 24565743 (Version 1)
Quarter: 2024Q4

REPORT INFORMATION
  Report Type: Spontaneous
  Country: BR (occurrence: BR)
  Receive Date: 20241030
  Receipt Date: 20241030
  Transmission Date: 20250114
  Serious: Yes (Hospitalization, Other)
  Sender: NOVO NORDISK
  Company Number: BR-NOVOPROD-1306955

PATIENT
  Age: 37 Year
  Sex: Female

DRUGS (1)
  1. WEGOVY [Suspect]
     Active Substance: SEMAGLUTIDE
     Indication: Product used for unknown indication
     Dosage: 1 MG

REACTIONS (8)
  - Near death experience [Unknown]
  - Nausea [Unknown]
  - Tremor [Unknown]
  - Sensation of foreign body [Unknown]
  - Cold sweat [Unknown]
  - Blood pressure decreased [Unknown]
  - Vomiting [Unknown]
  - Dizziness [Unknown]
